FAERS Safety Report 10208347 (Version 1)
Quarter: 2014Q2

REPORT INFORMATION
  Report Type: Spontaneous
  Country: US (occurrence: None)
  Receive Date: 20140528
  Receipt Date: 20140528
  Transmission Date: 20141212
  Serious: No
  Sender: FDA-Public Use
  Company Number: None

PATIENT
  Age: 65 Year
  Sex: Male
  Weight: 73.94 kg

DRUGS (4)
  1. XARELTO [Suspect]
     Indication: ANTICOAGULANT THERAPY
     Dates: start: 20140310, end: 20140504
  2. BABY ASPIRIN [Concomitant]
  3. PYCHOSENOL [Concomitant]
  4. RENAVIVE [Concomitant]

REACTIONS (5)
  - Urticaria [None]
  - Blood urine present [None]
  - Arthralgia [None]
  - Hepatic enzyme increased [None]
  - Blood alkaline phosphatase increased [None]
